FAERS Safety Report 8173047-X (Version None)
Quarter: 2012Q1

REPORT INFORMATION
  Report Type: 
  Country: None (occurrence: None)
  Receive Date: 20120229
  Receipt Date: 20120221
  Transmission Date: 20120608
  Serious: Yes (Hospitalization)
  Sender: FDA-Public Use
  Company Number: US-US-EMD SERONO, INC.-7114652

PATIENT
  Sex: Female

DRUGS (2)
  1. REBIF [Suspect]
     Indication: PRODUCT USED FOR UNKNOWN INDICATION
     Route: 058
     Dates: start: 20100305
  2. ALBUTEROL [Concomitant]
     Indication: ASTHMA

REACTIONS (3)
  - INJECTION SITE HAEMATOMA [None]
  - PNEUMONIA [None]
  - HALLUCINATION, VISUAL [None]
